FAERS Safety Report 14266133 (Version 1)
Quarter: 2017Q4

REPORT INFORMATION
  Report Type: Spontaneous
  Country: FR (occurrence: FR)
  Receive Date: 20171210
  Receipt Date: 20171210
  Transmission Date: 20180321
  Serious: Yes (Other)
  Sender: FDA-Public Use
  Company Number: FR-OTSUKA-BMS-2014-007664

PATIENT
  Age: 14 Year
  Sex: Male

DRUGS (1)
  1. ABILIFY [Suspect]
     Active Substance: ARIPIPRAZOLE
     Indication: PRODUCT USED FOR UNKNOWN INDICATION
     Dosage: 5 MG, QD
     Route: 065
     Dates: start: 201401, end: 201405

REACTIONS (1)
  - Pain [Unknown]

NARRATIVE: CASE EVENT DATE: 201405
